FAERS Safety Report 16965430 (Version 1)
Quarter: 2019Q4

REPORT INFORMATION
  Report Type: Spontaneous
  Country: SE (occurrence: SE)
  Receive Date: 20191028
  Receipt Date: 20191028
  Transmission Date: 20200122
  Serious: Yes (Death)
  Sender: FDA-Public Use
  Company Number: SE-SCIEGEN PHARMACEUTICALS INC-2019SCILIT00319

PATIENT
  Age: 67 Year
  Sex: Female

DRUGS (3)
  1. NONSTEROIDAL ANTI-INFLAMMATORY DRUGS [Interacting]
     Active Substance: UNSPECIFIED INGREDIENT
  2. METFORMIN HYDROCHLORIDETABLETS [Suspect]
     Active Substance: METFORMIN HYDROCHLORIDE
  3. ALCOHOL. [Interacting]
     Active Substance: ALCOHOL

REACTIONS (4)
  - Alcohol interaction [Unknown]
  - Dehydration [Fatal]
  - Drug interaction [Unknown]
  - Toxicity to various agents [Fatal]
